FAERS Safety Report 8530243 (Version 7)
Quarter: 2016Q2

REPORT INFORMATION
  Report Type: Spontaneous
  Country: US (occurrence: US)
  Receive Date: 20120425
  Receipt Date: 20160503
  Transmission Date: 20160815
  Serious: Yes (Hospitalization, Other)
  Sender: FDA-Public Use
  Company Number: US-ASTRAZENECA-2012SE25651

PATIENT
  Age: 40 Year
  Sex: Female
  Weight: 68 kg

DRUGS (47)
  1. BENICAR [Concomitant]
     Active Substance: OLMESARTAN MEDOXOMIL
     Dates: start: 20100302
  2. AMLODIPINE BESYLATE. [Concomitant]
     Active Substance: AMLODIPINE BESYLATE
     Dates: start: 20110627
  3. AVELOX [Concomitant]
     Active Substance: MOXIFLOXACIN HYDROCHLORIDE
     Route: 048
     Dates: start: 20100812
  4. MEDROXYPROGESTERONE ACETATE. [Concomitant]
     Active Substance: MEDROXYPROGESTERONE ACETATE
     Indication: HORMONE LEVEL ABNORMAL
     Dates: start: 1999, end: 201205
  5. PANTOPRAZOLE SODIUM. [Concomitant]
     Active Substance: PANTOPRAZOLE SODIUM
     Dates: start: 20100302
  6. MUCINEX [Concomitant]
     Active Substance: GUAIFENESIN
     Route: 048
     Dates: start: 20160125
  7. CRESTOR [Suspect]
     Active Substance: ROSUVASTATIN CALCIUM
     Indication: BLOOD CHOLESTEROL INCREASED
     Route: 048
     Dates: start: 20031030
  8. CARVEDILOL. [Concomitant]
     Active Substance: CARVEDILOL
     Indication: MYOCARDIAL INFARCTION
     Dates: start: 2004
  9. ACIPHEX [Concomitant]
     Active Substance: RABEPRAZOLE SODIUM
  10. TOPROL XL [Concomitant]
     Active Substance: METOPROLOL SUCCINATE
     Indication: MYOCARDIAL INFARCTION
     Dates: start: 20060609
  11. PLAVIX [Concomitant]
     Active Substance: CLOPIDOGREL BISULFATE
     Dates: start: 20100315
  12. FISH OIL [Concomitant]
     Active Substance: FISH OIL
     Dates: start: 20110627
  13. CRESTOR [Suspect]
     Active Substance: ROSUVASTATIN CALCIUM
     Indication: BLOOD CHOLESTEROL INCREASED
     Route: 048
     Dates: start: 1987
  14. DOCUSATE [Concomitant]
     Active Substance: DOCUSATE
  15. ASPIRIN. [Concomitant]
     Active Substance: ASPIRIN
     Dates: start: 20110627
  16. METFORMIN [Concomitant]
     Active Substance: METFORMIN HYDROCHLORIDE
     Route: 048
     Dates: start: 20110926
  17. AMBIEN [Concomitant]
     Active Substance: ZOLPIDEM TARTRATE
     Dates: start: 20051214
  18. NAPROXEN. [Concomitant]
     Active Substance: NAPROXEN
  19. ALPRAZOLAM. [Concomitant]
     Active Substance: ALPRAZOLAM
     Dates: start: 20000504
  20. OMNICEF [Concomitant]
     Active Substance: CEFDINIR
     Indication: MYOCARDIAL INFARCTION
     Dosage: TWO CAPSULES EACH DAY
     Dates: start: 20050321
  21. TRICOR [Concomitant]
     Active Substance: FENOFIBRATE
     Dates: start: 20060302
  22. DILTIAZEM [Concomitant]
     Active Substance: DILTIAZEM
     Dates: start: 20060302
  23. NITROGLYCERIN. [Concomitant]
     Active Substance: NITROGLYCERIN
     Dates: start: 20100302
  24. ZOLOFT [Concomitant]
     Active Substance: SERTRALINE HYDROCHLORIDE
     Dates: start: 20051013
  25. PROVENTIL [Concomitant]
     Active Substance: ALBUTEROL
     Dates: start: 20050704
  26. JANUVIA [Concomitant]
     Active Substance: SITAGLIPTIN PHOSPHATE
     Dates: start: 20120106
  27. EXFORGE HCT [Concomitant]
     Active Substance: AMLODIPINE BESYLATE\HYDROCHLOROTHIAZIDE\VALSARTAN
     Dosage: 5 MG-160 MG-12.5 MG
     Dates: start: 20121002
  28. VIMPAT [Concomitant]
     Active Substance: LACOSAMIDE
     Indication: SEIZURE
     Dates: start: 201301, end: 2015
  29. METOCLOPRAMIDE. [Concomitant]
     Active Substance: METOCLOPRAMIDE
  30. TEQUIN [Concomitant]
     Active Substance: GATIFLOXACIN
     Indication: MYOCARDIAL INFARCTION
     Dates: start: 20041021
  31. MULTIVITAMIN [Concomitant]
     Active Substance: VITAMINS
     Dosage: TWO TABLETS TWICE A DAY
     Dates: start: 20110228
  32. PRAVASTATIN [Concomitant]
     Active Substance: PRAVASTATIN\PRAVASTATIN SODIUM
     Dates: start: 201003
  33. NIASPAN [Concomitant]
     Active Substance: NIACIN
     Indication: HYPOVITAMINOSIS
     Dates: start: 2010, end: 2012
  34. STARLIX [Concomitant]
     Active Substance: NATEGLINIDE
  35. BUPROPION HYDROCHLORIDE. [Concomitant]
     Active Substance: BUPROPION HYDROCHLORIDE
     Dates: start: 20000225
  36. SINGULAIR [Concomitant]
     Active Substance: MONTELUKAST SODIUM
     Dates: start: 20010518
  37. AMARYL [Concomitant]
     Active Substance: GLIMEPIRIDE
     Indication: MYOCARDIAL INFARCTION
     Dates: start: 20040601
  38. PROMETHAZINE [Concomitant]
     Active Substance: PROMETHAZINE\PROMETHAZINE HYDROCHLORIDE
     Dates: start: 20060713
  39. CIPROFLOXACIN HYDROCHLORIDE. [Concomitant]
     Active Substance: CIPROFLOXACIN HYDROCHLORIDE
     Dates: start: 20061003
  40. LIPITOR [Concomitant]
     Active Substance: ATORVASTATIN CALCIUM
     Route: 048
     Dates: start: 20110926
  41. PREDNISONE. [Concomitant]
     Active Substance: PREDNISONE
     Indication: MYOCARDIAL INFARCTION
     Dates: start: 2001, end: 2005
  42. LORAZEPAM. [Concomitant]
     Active Substance: LORAZEPAM
  43. AMIDRINE [Concomitant]
  44. TIZANIDINE. [Concomitant]
     Active Substance: TIZANIDINE
  45. GLYBURIDE. [Concomitant]
     Active Substance: GLYBURIDE
     Dates: start: 19991217
  46. PREMARIN [Concomitant]
     Active Substance: ESTROGENS, CONJUGATED
     Dates: start: 19991217
  47. BYDUREON [Concomitant]
     Active Substance: EXENATIDE
     Route: 058
     Dates: start: 20121031

REACTIONS (17)
  - Acute myocardial infarction [Unknown]
  - Blood glucose abnormal [Not Recovered/Not Resolved]
  - Type 2 diabetes mellitus [Not Recovered/Not Resolved]
  - Diabetic neuropathy [Unknown]
  - Essential hypertension [Unknown]
  - Hypertensive heart disease [Not Recovered/Not Resolved]
  - Emotional distress [Unknown]
  - Rhabdomyolysis [Unknown]
  - Blood triglycerides increased [Unknown]
  - Seizure [Unknown]
  - Post polio syndrome [Unknown]
  - Coronary artery disease [Unknown]
  - Angina pectoris [Unknown]
  - Cardiomyopathy [Unknown]
  - Hormone level abnormal [Unknown]
  - Obesity [Unknown]
  - Myocardial infarction [Unknown]

NARRATIVE: CASE EVENT DATE: 1987
